FAERS Safety Report 9059055 (Version 1)
Quarter: 2013Q1

REPORT INFORMATION
  Report Type: Spontaneous
  Country: US (occurrence: US)
  Receive Date: 20130211
  Receipt Date: 20130211
  Transmission Date: 20140127
  Serious: Yes (Other)
  Sender: FDA-Public Use
  Company Number: US-BRISTOL-MYERS SQUIBB COMPANY-16666810

PATIENT
  Sex: Female

DRUGS (2)
  1. METFORMIN HCL [Suspect]
     Route: 065
  2. LANTUS [Suspect]
     Dosage: 1 DF: 100 IU/ML?SOLN INJ
     Route: 058
     Dates: start: 2010

REACTIONS (1)
  - Blood glucose increased [Unknown]
